FAERS Safety Report 5674195-6 (Version None)
Quarter: 2008Q1

REPORT INFORMATION
  Report Type: 
  Country: None (occurrence: None)
  Receive Date: 20080320
  Receipt Date: 20080311
  Transmission Date: 20080703
  Serious: Yes (Hospitalization, Other)
  Sender: FDA-Public Use
  Company Number: PHHO2008CA01757

PATIENT
  Age: 72 Year
  Sex: Female
  Weight: 50 kg

DRUGS (1)
  1. AMN107 [Suspect]
     Indication: CHRONIC MYELOID LEUKAEMIA
     Dosage: 800MG DAILY
     Route: 048
     Dates: start: 20070116

REACTIONS (20)
  - BUNDLE BRANCH BLOCK LEFT [None]
  - DIZZINESS [None]
  - DYSPNOEA [None]
  - ELECTROCARDIOGRAM QT PROLONGED [None]
  - EMPHYSEMA [None]
  - EPISTAXIS [None]
  - FACE OEDEMA [None]
  - FACIAL BONES FRACTURE [None]
  - FALL [None]
  - NASAL OEDEMA [None]
  - PAIN [None]
  - PLEURAL DISORDER [None]
  - PLEURAL FIBROSIS [None]
  - PULMONARY ARTERY DILATATION [None]
  - PULMONARY FIBROSIS [None]
  - PULMONARY HYPERTENSION [None]
  - SUPRAVENTRICULAR EXTRASYSTOLES [None]
  - SYNCOPE [None]
  - TACHYPNOEA [None]
  - TOOTH INJURY [None]
